FAERS Safety Report 8579685-4 (Version None)
Quarter: 2012Q3

REPORT INFORMATION
  Report Type: 
  Country: None (occurrence: None)
  Receive Date: 20120808
  Receipt Date: 20120806
  Transmission Date: 20120928
  Serious: Yes (Life-Threatening)
  Sender: FDA-Public Use
  Company Number: AU-TEVA-352375USA

PATIENT
  Age: 49 Year
  Sex: Male

DRUGS (3)
  1. VELCADE [Suspect]
     Indication: MANTLE CELL LYMPHOMA
  2. TREANDA [Suspect]
     Indication: MANTLE CELL LYMPHOMA
  3. RITUXIMAB [Suspect]
     Indication: MANTLE CELL LYMPHOMA

REACTIONS (1)
  - THROMBOTIC THROMBOCYTOPENIC PURPURA [None]
